FAERS Safety Report 5425074-0 (Version None)
Quarter: 2007Q3

REPORT INFORMATION
  Report Type: 
  Country: None (occurrence: None)
  Receive Date: 20070824
  Receipt Date: 20070816
  Transmission Date: 20080115
  Serious: Yes (Death)
  Sender: FDA-Public Use
  Company Number: US-JNJFOC-20061104942

PATIENT
  Sex: Male

DRUGS (20)
  1. DURAGESIC-100 [Suspect]
     Route: 062
  2. DURAGESIC-100 [Suspect]
     Indication: PAIN
     Route: 062
  3. NEURONTIN [Concomitant]
  4. ZOLOFT [Concomitant]
  5. ZOLOFT [Concomitant]
  6. CEPHALEXIN [Concomitant]
  7. CIPROFLOXACIN [Concomitant]
  8. WARFARIN SODIUM [Concomitant]
  9. FUROSEMIDE [Concomitant]
  10. IMIPRAMINE [Concomitant]
  11. BACLOFEN [Concomitant]
  12. PROTONIX [Concomitant]
  13. PROPRANOLOL [Concomitant]
  14. HYDROCODONE BITARTRATE [Concomitant]
  15. DOCUSATE SODIUM [Concomitant]
  16. BEXIN [Concomitant]
  17. AMBIEN [Concomitant]
  18. INDOMETHACIN [Concomitant]
  19. KEPPRA [Concomitant]
  20. AUGMENTIN '125' [Concomitant]
     Dosage: 875/125 MG B.I.D.  X 10 DAYS

REACTIONS (4)
  - DEVICE FAILURE [None]
  - INAPPROPRIATE SCHEDULE OF DRUG ADMINISTRATION [None]
  - MULTIPLE DRUG OVERDOSE [None]
  - PHARMACEUTICAL PRODUCT COMPLAINT [None]
